FAERS Safety Report 4739592-1 (Version None)
Quarter: 2005Q3

REPORT INFORMATION
  Report Type: 
  Country: None (occurrence: None)
  Receive Date: 20050801
  Receipt Date: 20041116
  Transmission Date: 20060218
  Serious: Yes (Other)
  Sender: FDA-Public Use
  Company Number: 140729USA

PATIENT
  Age: 54 Year
  Sex: Female

DRUGS (1)
  1. DIFLUNISAL [Suspect]
     Indication: PAIN
     Dates: start: 20020901

REACTIONS (2)
  - STEVENS-JOHNSON SYNDROME [None]
  - TOXIC EPIDERMAL NECROLYSIS [None]
